FAERS Safety Report 18552943 (Version 1)
Quarter: 2020Q4

REPORT INFORMATION
  Report Type: Spontaneous
  Country: US (occurrence: US)
  Receive Date: 20201127
  Receipt Date: 20201127
  Transmission Date: 20210114
  Serious: No
  Sender: FDA-Public Use
  Company Number: US-TEVA-2020-US-1849173

PATIENT

DRUGS (4)
  1. PROLOXINE [Concomitant]
     Dosage: EVERY 14 DAYS
  2. AUSTEDO [Suspect]
     Active Substance: DEUTETRABENAZINE
     Dosage: INITIALLY ON AUSTEDO TABLETS 6 MG
     Route: 065
     Dates: start: 2020
  3. AUSTEDO [Suspect]
     Active Substance: DEUTETRABENAZINE
     Dosage: MOVED TO AUSTEDO TABLETS 9 MG
     Route: 065
  4. AUSTEDO [Suspect]
     Active Substance: DEUTETRABENAZINE
     Indication: TARDIVE DYSKINESIA
     Dosage: 24 MILLIGRAM DAILY; CURRENT DOSE: 2 AUSTEDO TABLETS 6 MG TWICE A DAY
     Route: 065

REACTIONS (3)
  - Tremor [Unknown]
  - Drug ineffective [Unknown]
  - Trismus [Unknown]

NARRATIVE: CASE EVENT DATE: 2020
